FAERS Safety Report 12821704 (Version 2)
Quarter: 2016Q4

REPORT INFORMATION
  Report Type: Spontaneous
  Country: BR (occurrence: BR)
  Receive Date: 20161006
  Receipt Date: 20161108
  Transmission Date: 20170207
  Serious: Yes (Other)
  Sender: FDA-Public Use
  Company Number: PHHY2016BR136147

PATIENT
  Sex: Female
  Weight: 52.5 kg

DRUGS (2)
  1. RAZAPINA [Suspect]
     Active Substance: MIRTAZAPINE
     Indication: DEPRESSION
     Dosage: 15 MG, TID
     Route: 048
     Dates: start: 20150522
  2. RAZAPINA [Suspect]
     Active Substance: MIRTAZAPINE
     Indication: INCREASED APPETITE

REACTIONS (6)
  - Drug administration error [Unknown]
  - Bursitis [Recovering/Resolving]
  - Tendonitis [Recovering/Resolving]
  - Weight increased [Recovering/Resolving]
  - Off label use [Unknown]
  - Drug dependence [Recovering/Resolving]
